FAERS Safety Report 6180848-6 (Version None)
Quarter: 2009Q2

REPORT INFORMATION
  Report Type: 
  Country: None (occurrence: None)
  Receive Date: 20090504
  Receipt Date: 20090504
  Transmission Date: 20091009
  Serious: Yes (Other)
  Sender: FDA-Public Use
  Company Number: None

PATIENT
  Sex: Female
  Weight: 45.3597 kg

DRUGS (1)
  1. REGLAN [Suspect]
     Indication: GASTROOESOPHAGEAL REFLUX DISEASE
     Dosage: 1 TABLET TWICE DAILY PO
     Route: 048
     Dates: start: 20080613, end: 20090324

REACTIONS (4)
  - ANXIETY [None]
  - DEPRESSION [None]
  - DYSKINESIA [None]
  - TARDIVE DYSKINESIA [None]
